FAERS Safety Report 13078664 (Version 1)
Quarter: 2017Q1

REPORT INFORMATION
  Report Type: Spontaneous
  Country: US (occurrence: US)
  Receive Date: 20170102
  Receipt Date: 20170102
  Transmission Date: 20170428
  Serious: No
  Sender: FDA-Public Use
  Company Number: US-MEDA-2016120056

PATIENT
  Age: 53 Year
  Sex: Female

DRUGS (1)
  1. EDLUAR [Suspect]
     Active Substance: ZOLPIDEM TARTRATE
     Indication: INSOMNIA
     Route: 048
     Dates: start: 201312

REACTIONS (6)
  - Trigeminal neuralgia [Not Recovered/Not Resolved]
  - Pain [Unknown]
  - Oral pain [Unknown]
  - Nerve injury [Unknown]
  - Neuropathy peripheral [Recovering/Resolving]
  - Weight increased [Unknown]

NARRATIVE: CASE EVENT DATE: 2014
